FAERS Safety Report 24091854 (Version 1)
Quarter: 2024Q3

REPORT INFORMATION
  Report Type: Spontaneous
  Country: US (occurrence: US)
  Receive Date: 20240715
  Receipt Date: 20240715
  Transmission Date: 20241016
  Serious: No
  Sender: PERRIGO
  Company Number: US-PERRIGO-24US000691

PATIENT
  Age: 57 Year
  Sex: Male
  Weight: 83.9 kg

DRUGS (3)
  1. MINOXIDIL [Suspect]
     Active Substance: MINOXIDIL
     Indication: Alopecia
     Dosage: 1 CC, BID
     Route: 061
     Dates: start: 202310, end: 202312
  2. MINOXIDIL [Suspect]
     Active Substance: MINOXIDIL
     Dosage: 1 CC, QD
     Route: 061
     Dates: start: 202312, end: 202401
  3. FINASTERIDE [Concomitant]
     Active Substance: FINASTERIDE
     Indication: Alopecia
     Dosage: UNK
     Route: 065
     Dates: start: 202310

REACTIONS (3)
  - Hypersensitivity [Recovered/Resolved]
  - Pruritus [Recovered/Resolved]
  - Inappropriate schedule of product administration [Recovered/Resolved]

NARRATIVE: CASE EVENT DATE: 20231001
